FAERS Safety Report 5509240-1 (Version None)
Quarter: 2007Q4

REPORT INFORMATION
  Report Type: 
  Country: None (occurrence: None)
  Receive Date: 20071107
  Receipt Date: 20071105
  Transmission Date: 20080405
  Serious: Yes (Death)
  Sender: FDA-Public Use
  Company Number: US-BOEHRINGER INGELHEIM PHARMACEUTICALS, INC.-2007-BP-22491BP

PATIENT
  Age: 64 Year
  Sex: Female

DRUGS (4)
  1. COMBIVENT [Suspect]
     Indication: ASTHMA
     Route: 055
  2. PREDNISONE [Suspect]
  3. ALLEGRA [Concomitant]
  4. OXYGEN [Concomitant]
     Indication: EMPHYSEMA

REACTIONS (2)
  - CONDITION AGGRAVATED [None]
  - DEATH [None]
